FAERS Safety Report 8874451 (Version 4)
Quarter: 2013Q1

REPORT INFORMATION
  Report Type: Spontaneous
  Country: US (occurrence: US)
  Receive Date: 20121030
  Receipt Date: 20130301
  Transmission Date: 20140127
  Serious: No
  Sender: FDA-Public Use
  Company Number: US-PFIZER INC-2012266569

PATIENT
  Age: 57 Year
  Sex: Female

DRUGS (1)
  1. NEURONTIN [Suspect]
     Indication: MONONEURITIS
     Dosage: 1 DF, AT BEDTIME
     Route: 048
     Dates: start: 20120821, end: 20121024

REACTIONS (1)
  - Vision blurred [Unknown]
